FAERS Safety Report 4333907-4 (Version None)
Quarter: 2004Q2

REPORT INFORMATION
  Report Type: 
  Country: None (occurrence: None)
  Receive Date: 20040402
  Receipt Date: 20040324
  Transmission Date: 20050107
  Serious: Yes (Other)
  Sender: FDA-Public Use
  Company Number: ZONI001377

PATIENT
  Sex: Female

DRUGS (1)
  1. ZONISAMIDE (ZONISAMIDE) [Suspect]
     Indication: BINGE EATING
     Dosage: ORAL
     Route: 048

REACTIONS (3)
  - HYDRONEPHROSIS [None]
  - NEPHROLITHIASIS [None]
  - PYELONEPHRITIS [None]
